FAERS Safety Report 14024423 (Version 1)
Quarter: 2017Q3

REPORT INFORMATION
  Report Type: Spontaneous
  Country: US (occurrence: US)
  Receive Date: 20170928
  Receipt Date: 20170928
  Transmission Date: 20171128
  Serious: No
  Sender: FDA-Public Use
  Company Number: US-SA-2017SA005548

PATIENT
  Age: 57 Year
  Sex: Female

DRUGS (2)
  1. AUBAGIO [Suspect]
     Active Substance: TERIFLUNOMIDE
     Indication: MULTIPLE SCLEROSIS
     Route: 048
     Dates: start: 20161208, end: 20161231
  2. SIMVASTATIN. [Concomitant]
     Active Substance: SIMVASTATIN

REACTIONS (13)
  - Vitreous floaters [Unknown]
  - Chest pain [Unknown]
  - Oral fungal infection [Unknown]
  - Pharyngeal disorder [Unknown]
  - Abdominal pain [Unknown]
  - Upper respiratory tract infection [Unknown]
  - Oropharyngeal pain [Unknown]
  - Headache [Unknown]
  - Hypoaesthesia [Unknown]
  - Alopecia [Unknown]
  - Pharyngitis streptococcal [Unknown]
  - Tongue blistering [Unknown]
  - Diarrhoea [Unknown]
